FAERS Safety Report 4302165-9 (Version None)
Quarter: 2004Q1

REPORT INFORMATION
  Report Type: 
  Country: None (occurrence: None)
  Receive Date: 20040126
  Receipt Date: 20031024
  Transmission Date: 20041129
  Serious: No
  Sender: FDA-Public Use
  Company Number: US_031098505

PATIENT
  Age: 12 Year
  Sex: 0

DRUGS (2)
  1. STRATTERA [Suspect]
     Dosage: 18 MG/D
  2. WELLBUTRIN [Concomitant]

REACTIONS (2)
  - ANGER [None]
  - NERVOUSNESS [None]
